FAERS Safety Report 6342375-2 (Version None)
Quarter: 2009Q3

REPORT INFORMATION
  Report Type: 
  Country: None (occurrence: None)
  Receive Date: 20090908
  Receipt Date: 20071121
  Transmission Date: 20100115
  Serious: Yes (Hospitalization, Other)
  Sender: FDA-Public Use
  Company Number: US-ASTRAZENECA-2006UW27887

PATIENT
  Age: 31 Year
  Sex: Male
  Weight: 113.4 kg

DRUGS (20)
  1. SEROQUEL [Suspect]
     Indication: BIPOLAR DISORDER
     Dosage: 25MG-500MG
     Route: 048
     Dates: start: 20010312
  2. SEROQUEL [Suspect]
     Indication: SCHIZOPHRENIA
     Dosage: 25MG-500MG
     Route: 048
     Dates: start: 20010312
  3. SEROQUEL [Suspect]
     Route: 048
     Dates: start: 20020101, end: 20030301
  4. SEROQUEL [Suspect]
     Route: 048
     Dates: start: 20020101, end: 20030301
  5. DIFLUCAN [Concomitant]
     Indication: BACTERAEMIA
     Dates: start: 20030114
  6. PAXIL [Concomitant]
     Dosage: 20MG-25MG
     Dates: start: 20020712
  7. CLONAZEPAM [Concomitant]
     Dosage: 0.5MG-1MG
     Dates: start: 20001219
  8. DEPAKOTE [Concomitant]
     Dates: start: 20010312
  9. RISPERDAL [Concomitant]
     Dates: start: 20010906
  10. PROZAC [Concomitant]
     Dosage: 20 MG DISPENCED
     Dates: start: 19940310
  11. LANTUS [Concomitant]
     Dosage: 15 UNITS AT BEDTIME
     Dates: start: 20030309
  12. METHYLDOPA [Concomitant]
     Dates: start: 20010812
  13. STELAZINE [Concomitant]
     Dates: start: 19920408
  14. NEURONTIN [Concomitant]
     Dates: start: 20010326
  15. NEURONTIN [Concomitant]
     Dates: start: 20010613
  16. WELLBUTRIN [Concomitant]
     Dates: start: 20050202
  17. LITHIUM CARBONATE [Concomitant]
     Dates: start: 20050202
  18. BACLOFEN [Concomitant]
     Indication: TARDIVE DYSKINESIA
     Dosage: 10MG-20MG
     Dates: start: 20010202
  19. PERCOCET [Concomitant]
     Dosage: 5 MG AS REQUIRED
     Dates: start: 20030224
  20. GLIPIZIDE [Concomitant]
     Dosage: 5 MG DISPNCED
     Dates: start: 20040224

REACTIONS (10)
  - BLOOD CHOLESTEROL INCREASED [None]
  - DIABETES MELLITUS [None]
  - DIABETES MELLITUS INADEQUATE CONTROL [None]
  - HYPERGLYCAEMIA [None]
  - PANCREATIC PSEUDOCYST [None]
  - PANCREATITIS [None]
  - PANCREATITIS ACUTE [None]
  - PANCREATITIS CHRONIC [None]
  - TARDIVE DYSKINESIA [None]
  - TYPE 2 DIABETES MELLITUS [None]
